FAERS Safety Report 24687793 (Version 1)
Quarter: 2024Q4

REPORT INFORMATION
  Report Type: Spontaneous
  Country: GB (occurrence: GB)
  Receive Date: 20241202
  Receipt Date: 20241202
  Transmission Date: 20250115
  Serious: Yes (Other)
  Sender: ABBVIE
  Company Number: None

PATIENT
  Age: 43 Year
  Sex: Female

DRUGS (1)
  1. ATOGEPANT [Suspect]
     Active Substance: ATOGEPANT
     Indication: Migraine
     Dosage: 60MG OD
     Route: 048

REACTIONS (5)
  - Arthralgia [Not Recovered/Not Resolved]
  - Dizziness [Not Recovered/Not Resolved]
  - Rash [Not Recovered/Not Resolved]
  - Nausea [Not Recovered/Not Resolved]
  - Abdominal pain upper [Not Recovered/Not Resolved]
